FAERS Safety Report 4596252-8 (Version None)
Quarter: 2005Q1

REPORT INFORMATION
  Report Type: 
  Country: None (occurrence: None)
  Receive Date: 20050225
  Receipt Date: 20050209
  Transmission Date: 20050727
  Serious: Yes (Hospitalization)
  Sender: FDA-Public Use
  Company Number: 2003IM001285

PATIENT
  Age: 53 Year
  Sex: Female

DRUGS (3)
  1. INFERAX(INTERFERON ALFACON-1) [Suspect]
     Indication: HEPATITIS C
     Dosage: 1, TIW, SUBCUTANEOUS
     Route: 058
     Dates: start: 20030201
  2. RIBAVIRIN [Suspect]
     Indication: HEPATITIS C
     Dosage: 600 MG, ORAL
     Route: 048
     Dates: start: 20030201
  3. METOPROLOL [Suspect]
     Dosage: 47.5 MG
     Dates: start: 20020701

REACTIONS (2)
  - HYPERTENSION [None]
  - LEUKOENCEPHALOPATHY [None]
